FAERS Safety Report 6922235-6 (Version None)
Quarter: 2010Q3

REPORT INFORMATION
  Report Type: 
  Country: None (occurrence: None)
  Receive Date: 20100811
  Receipt Date: 20100803
  Transmission Date: 20110219
  Serious: Yes (Other)
  Sender: FDA-Public Use
  Company Number: US-1182865

PATIENT
  Sex: Female

DRUGS (1)
  1. OMNIPRED [Suspect]
     Dosage: (OPHTHALMIC)
     Route: 047

REACTIONS (7)
  - ABDOMINAL PAIN [None]
  - BALANCE DISORDER [None]
  - EYE IRRITATION [None]
  - HEADACHE [None]
  - MALAISE [None]
  - MENTAL IMPAIRMENT [None]
  - URINARY INCONTINENCE [None]
